FAERS Safety Report 19841677 (Version 1)
Quarter: 2021Q3

REPORT INFORMATION
  Report Type: Spontaneous
  Country: NO (occurrence: NO)
  Receive Date: 20210916
  Receipt Date: 20210916
  Transmission Date: 20211014
  Serious: Yes (Hospitalization)
  Sender: FDA-Public Use
  Company Number: NO-TEVA-2021-NO-1951734

PATIENT
  Age: 46 Year
  Sex: Female
  Weight: 85 kg

DRUGS (3)
  1. AJOVY [Suspect]
     Active Substance: FREMANEZUMAB-VFRM
     Indication: MIGRAINE
     Dosage: 1 INJECTION EACH MONTH:N02CD03 ? FREMANEZUMAB ? ONGOING TREATMENTSUBTANCE NAME : FREMANEZUMAB ,
     Dates: start: 202006
  2. CATAFLAM TAB 50 MG [Concomitant]
     Indication: NECK PAIN
     Dosage: 150 MILLIGRAM DAILY; 50 MG X 3 DAILY:M01AB05 ? DICLOFENAC ? ONGOING TREATMENTSUBTANCE NAME: DICLOFEN
  3. CYMBALTA ENTEROKAPS 60 MG [Concomitant]
     Indication: NEURALGIA
     Dosage: 60 MILLIGRAM DAILY; 60 MG X 1 DAILY:N06AX21 ? DULOXETINE ? ONGOING TREATMENTSUBTANCE NAME: DULOXETIN

REACTIONS (6)
  - Illness [Unknown]
  - Headache [Unknown]
  - Hypertension [Recovering/Resolving]
  - Blood pressure management [Not Recovered/Not Resolved]
  - Dizziness [Unknown]
  - Constipation [Recovered/Resolved]

NARRATIVE: CASE EVENT DATE: 202007
